FAERS Safety Report 16677220 (Version 1)
Quarter: 2019Q3

REPORT INFORMATION
  Report Type: Spontaneous
  Country: IN (occurrence: IN)
  Receive Date: 20190807
  Receipt Date: 20190807
  Transmission Date: 20191004
  Serious: Yes (Other)
  Sender: FDA-Public Use
  Company Number: IN-B.I. PHARMACEUTICALS,INC./RIDGEFIELD-2019-BI-032240

PATIENT
  Age: 72 Year
  Sex: Female

DRUGS (6)
  1. NOVOMIX [Suspect]
     Active Substance: INSULIN ASPART
     Indication: PRODUCT USED FOR UNKNOWN INDICATION
     Route: 065
  2. RENERVE PLUS [METHYLCOBALAMIN\NIACINAMIDE\PYRIDOXINE] [Suspect]
     Active Substance: METHYLCOBALAMIN\NIACINAMIDE\PYRIDOXINE
     Indication: DIABETIC NEUROPATHY
  3. GLUCONORM G [Suspect]
     Active Substance: GLIMEPIRIDE\METFORMIN
     Indication: PRODUCT USED FOR UNKNOWN INDICATION
     Dosage: STRENGTH, UNIT DOSE AND DAILY DOSE: 0.5
     Route: 048
  4. JARDIANCE [Suspect]
     Active Substance: EMPAGLIFLOZIN
     Indication: PRODUCT USED FOR UNKNOWN INDICATION
     Route: 048
  5. GALVUS [Suspect]
     Active Substance: VILDAGLIPTIN
     Indication: PRODUCT USED FOR UNKNOWN INDICATION
     Dosage: STRENGTH, UNIT DOSE AND DAILY DOSE: 50
     Route: 048
  6. RENERVE PLUS [METHYLCOBALAMIN\NIACINAMIDE\PYRIDOXINE] [Suspect]
     Active Substance: METHYLCOBALAMIN\NIACINAMIDE\PYRIDOXINE
     Indication: PROPHYLAXIS
     Route: 065

REACTIONS (5)
  - Gastrointestinal disorder [Unknown]
  - Drug ineffective [Unknown]
  - Nausea [Unknown]
  - Vitamin B12 increased [Unknown]
  - Drug interaction [Unknown]
